FAERS Safety Report 24141102 (Version 1)
Quarter: 2024Q3

REPORT INFORMATION
  Report Type: Spontaneous
  Country: US (occurrence: None)
  Receive Date: 20240725
  Receipt Date: 20240725
  Transmission Date: 20241016
  Serious: Yes (Other)
  Sender: Public
  Company Number: None

PATIENT
  Age: 75 Year
  Sex: Female
  Weight: 91.35 kg

DRUGS (17)
  1. POMALYST [Suspect]
     Active Substance: POMALIDOMIDE
     Indication: Plasma cell myeloma
     Dosage: FREQUENCY : DAILY;?
     Route: 048
     Dates: start: 20240101
  2. Bariatric Multivitamins 45 mg iron-800 mcg-120 mcg capsule [Concomitant]
  3. calcium citrate 250 mg tablet [Concomitant]
  4. Decadron 4 mg tablet [Concomitant]
  5. Effexor XR 150 mg capsule,extended release [Concomitant]
  6. t	Flovent HFA 44 mcg/actuation aerosol inhaler [Concomitant]
  7. hydrocodone 7.5 mg-ibuprofen 200 mg table [Concomitant]
  8. Imitrex 50 mg tablet [Concomitant]
  9. lisinopril 2.5 mg table [Concomitant]
  10. Lomotil 2.5 mg-0.025 mg tablet [Concomitant]
  11. meclizine 25 mg tablet [Concomitant]
  12. omeprazole 20 mg capsule,delayed release [Concomitant]
  13. MONTELUKAST\MONTELUKAST SODIUM [Concomitant]
     Active Substance: MONTELUKAST\MONTELUKAST SODIUM
  14. ROSUVASTATIN [Concomitant]
     Active Substance: ROSUVASTATIN\ROSUVASTATIN CALCIUM
  15. tramadol 50 mg tablet [Concomitant]
  16. Vitamin D3 2,000 unit tablet [Concomitant]
  17. warfarin 5 mg tablet [Concomitant]

REACTIONS (1)
  - Dizziness [None]

NARRATIVE: CASE EVENT DATE: 20240725
